FAERS Safety Report 4706161-9 (Version None)
Quarter: 2005Q2

REPORT INFORMATION
  Report Type: 
  Country: None (occurrence: None)
  Receive Date: 20050629
  Receipt Date: 20050310
  Transmission Date: 20051028
  Serious: Yes (Hospitalization)
  Sender: FDA-Public Use
  Company Number: 04P-163-0277618-00

PATIENT
  Age: 64 Year
  Sex: Female
  Weight: 92.5338 kg

DRUGS (6)
  1. HUMIRA [Suspect]
     Indication: RHEUMATOID ARTHRITIS
     Dosage: 40 MG, 1 IN 2 WK, SUBCUTANEOUS
     Route: 058
     Dates: start: 20040101, end: 20040901
  2. HUMIRA [Suspect]
     Indication: RHEUMATOID ARTHRITIS
     Dosage: 40 MG, 1 IN 2 WK, SUBCUTANEOUS
     Route: 058
     Dates: start: 20050201
  3. METOPROLOL SUCCINATE [Concomitant]
  4. ESOMEPRAZOLE [Concomitant]
  5. SALBUTAMOL [Concomitant]
  6. PREDNISONE [Concomitant]

REACTIONS (5)
  - DRUG INEFFECTIVE [None]
  - MYOCARDIAL INFARCTION [None]
  - POSTOPERATIVE INFECTION [None]
  - RESPIRATORY TRACT INFECTION [None]
  - WHITE BLOOD CELL COUNT INCREASED [None]
